FAERS Safety Report 6109414-5 (Version None)
Quarter: 2009Q1

REPORT INFORMATION
  Report Type: 
  Country: None (occurrence: None)
  Receive Date: 20090310
  Receipt Date: 20090303
  Transmission Date: 20090719
  Serious: Yes (Other)
  Sender: FDA-Public Use
  Company Number: B0559432A

PATIENT
  Age: 17 Year
  Sex: Female

DRUGS (3)
  1. RELENZA [Suspect]
     Indication: INFLUENZA
     Dosage: 10MG TWICE PER DAY
     Route: 055
     Dates: start: 20090209, end: 20090209
  2. UNKNOWN DRUG [Concomitant]
     Indication: COUGH
     Route: 048
     Dates: start: 20090209, end: 20090209
  3. CHLORPHENTERMINE 65MG TAB [Concomitant]
     Route: 048
     Dates: start: 20090209, end: 20090209

REACTIONS (5)
  - ABNORMAL BEHAVIOUR [None]
  - AMNESIA [None]
  - CIRCULATORY COLLAPSE [None]
  - FALL [None]
  - MALAISE [None]
